FAERS Safety Report 14145762 (Version 3)
Quarter: 2017Q4

REPORT INFORMATION
  Report Type: Spontaneous
  Country: US (occurrence: US)
  Receive Date: 20171031
  Receipt Date: 20171206
  Transmission Date: 20180321
  Serious: Yes (Disabling)
  Sender: FDA-Public Use
  Company Number: US-PFIZER INC-2017465504

PATIENT
  Age: 58 Year
  Sex: Female
  Weight: 71.67 kg

DRUGS (6)
  1. ELELYSO [Suspect]
     Active Substance: TALIGLUCERASE ALFA
     Indication: GAUCHER^S DISEASE
     Dosage: 1 DF, CYCLIC (ONE INTRAVENOUS INFUSION EVERY THREE WEEKS)
     Route: 042
     Dates: start: 2016, end: 20170301
  2. ELELYSO [Suspect]
     Active Substance: TALIGLUCERASE ALFA
     Dosage: UNK
     Dates: end: 20171002
  3. ELELYSO [Suspect]
     Active Substance: TALIGLUCERASE ALFA
     Dosage: 1 DF, CYCLIC (ONE INTRAVENOUS INFUSION EVERY THREE WEEKS)
     Route: 042
     Dates: start: 201709, end: 201709
  4. ATARAX [Concomitant]
     Active Substance: HYDROXYZINE HYDROCHLORIDE
     Dosage: 25 MG, UNK (30 MINUTE BEFORE INFUSION)
     Dates: start: 20171005
  5. ELELYSO [Suspect]
     Active Substance: TALIGLUCERASE ALFA
     Dosage: UNK
     Route: 042
     Dates: start: 20160215, end: 20171011
  6. ELELYSO [Suspect]
     Active Substance: TALIGLUCERASE ALFA
     Dosage: 1 DF, CYCLIC (ONE INTRAVENOUS INFUSION EVERY THREE WEEKS)
     Route: 042
     Dates: start: 20170614, end: 20170614

REACTIONS (6)
  - Drug hypersensitivity [Not Recovered/Not Resolved]
  - Nausea [Recovered/Resolved]
  - Epigastric discomfort [Recovered/Resolved]
  - Abdominal pain [Recovered/Resolved]
  - Muscle spasms [Recovered/Resolved]
  - Oesophageal spasm [Recovered/Resolved]

NARRATIVE: CASE EVENT DATE: 20170118
